FAERS Safety Report 6694057-5 (Version None)
Quarter: 2010Q2

REPORT INFORMATION
  Report Type: 
  Country: None (occurrence: None)
  Receive Date: 20100423
  Receipt Date: 20100412
  Transmission Date: 20101027
  Serious: Yes (Hospitalization, Other)
  Sender: FDA-Public Use
  Company Number: US-PFIZER INC-2010045628

PATIENT
  Age: 41 Year
  Sex: Male

DRUGS (10)
  1. ALPRAZOLAM [Suspect]
     Dosage: 1 MG, 3X/DAY PRN
  2. AMLODIPINE BESILATE [Suspect]
     Dosage: 5 MG DAILY
  3. LINEZOLID [Suspect]
  4. SERTRALINE HCL [Suspect]
     Dosage: 50 MG DAILY
  5. VENLAFAXINE HYDROCHLORIDE [Suspect]
     Dosage: 300 MG DAILY
  6. MELOXICAM [Suspect]
     Dosage: 15 MG, 2X/DAY
  7. FAMOTIDINE [Suspect]
     Dosage: 20 MG, 2X/DAY
  8. OXYCODONE [Suspect]
     Dosage: 20 MG DAILY
  9. CYCLOBENZAPRINE [Suspect]
     Dosage: 10 MG, 3X/DAY PRN
  10. ACETAMINOPHEN AND OXYCODONE HCL [Suspect]
     Dosage: 5/325 MG Q4H PRN

REACTIONS (1)
  - SEROTONIN SYNDROME [None]
